FAERS Safety Report 25452654 (Version 1)
Quarter: 2025Q2

REPORT INFORMATION
  Report Type: Spontaneous
  Country: AT (occurrence: AT)
  Receive Date: 20250618
  Receipt Date: 20250618
  Transmission Date: 20250716
  Serious: Yes (Other)
  Sender: ABBVIE
  Company Number: AT-ABBVIE-6333146

PATIENT
  Age: 75 Year
  Sex: Female

DRUGS (4)
  1. VENETOCLAX [Suspect]
     Active Substance: VENETOCLAX
     Indication: Acute myeloid leukaemia
     Dates: start: 20240905
  2. VENETOCLAX [Suspect]
     Active Substance: VENETOCLAX
     Indication: Acute myeloid leukaemia
  3. AZACITIDINE [Concomitant]
     Active Substance: AZACITIDINE
     Indication: Product used for unknown indication
  4. GRANULOCYTE COLONY-STIMULATING FACTOR NOS [Concomitant]
     Active Substance: GRANULOCYTE COLONY-STIMULATING FACTOR NOS
     Indication: Product used for unknown indication

REACTIONS (9)
  - Bone marrow failure [Unknown]
  - Off label use [Unknown]
  - Neutropenic infection [Unknown]
  - Platelet count abnormal [Unknown]
  - Mucosal inflammation [Unknown]
  - Blood lactate dehydrogenase increased [Unknown]
  - Glomerular filtration rate decreased [Unknown]
  - Chronic fatigue syndrome [Unknown]
  - Neutrophil count abnormal [Unknown]
